FAERS Safety Report 16362285 (Version 1)
Quarter: 2019Q2

REPORT INFORMATION
  Report Type: Spontaneous
  Country: US (occurrence: US)
  Receive Date: 20190419
  Receipt Date: 20190419
  Transmission Date: 20190711
  Serious: Yes (Death)
  Sender: FDA-Public Use
  Company Number: None

PATIENT
  Age: 63 Year
  Sex: Male

DRUGS (12)
  1. PRAVACHOL [Concomitant]
     Active Substance: PRAVASTATIN SODIUM
  2. GLIPIZIDE. [Concomitant]
     Active Substance: GLIPIZIDE
  3. PRAVASTATIN. [Concomitant]
     Active Substance: PRAVASTATIN
  4. GLIPIZINE [Concomitant]
  5. AMLODIPINE [Concomitant]
     Active Substance: AMLODIPINE BESYLATE
  6. RANITIDINE. [Concomitant]
     Active Substance: RANITIDINE
  7. METFORMIN [Concomitant]
     Active Substance: METFORMIN HYDROCHLORIDE
  8. LANTUS [Concomitant]
     Active Substance: INSULIN GLARGINE
  9. MYCOPHENOLIC 360MG TABLETS [Suspect]
     Active Substance: MYCOPHENOLIC ACID
     Indication: END STAGE RENAL DISEASE
     Dosage: EVERY 12 HOURS ORAL
     Route: 048
     Dates: start: 20190312
  10. MYCOPHENOLIC 360MG TABLETS [Suspect]
     Active Substance: MYCOPHENOLIC ACID
     Indication: TRANSPLANT
     Dosage: EVERY 12 HOURS ORAL
     Route: 048
     Dates: start: 20190312
  11. LISINOPRIL. [Concomitant]
     Active Substance: LISINOPRIL
  12. ZOLPIDEM [Concomitant]
     Active Substance: ZOLPIDEM\ZOLPIDEM TARTRATE

REACTIONS (1)
  - Death [None]

NARRATIVE: CASE EVENT DATE: 201904
